FAERS Safety Report 8410610-2 (Version None)
Quarter: 2012Q2

REPORT INFORMATION
  Report Type: 
  Country: None (occurrence: None)
  Receive Date: 20120605
  Receipt Date: 20120525
  Transmission Date: 20120825
  Serious: Yes (Other)
  Sender: FDA-Public Use
  Company Number: JP-JNJFOC-20120308140

PATIENT
  Age: 22 Year
  Sex: Female
  Weight: 50 kg

DRUGS (15)
  1. REMICADE [Suspect]
     Route: 042
     Dates: start: 20111228
  2. PREDONEMA [Concomitant]
     Indication: COLITIS ULCERATIVE
     Route: 048
     Dates: start: 20110713, end: 20110719
  3. REMICADE [Suspect]
     Route: 042
     Dates: start: 20111102
  4. REMICADE [Suspect]
     Route: 042
     Dates: start: 20110907
  5. CEFAZOLIN SODIUM [Concomitant]
     Indication: COLITIS ULCERATIVE
     Route: 048
     Dates: start: 20110710
  6. REMICADE [Suspect]
     Indication: COLITIS ULCERATIVE
     Route: 042
     Dates: start: 20110809
  7. PROGRAF [Concomitant]
     Route: 048
     Dates: start: 20110722, end: 20110722
  8. REMICADE [Suspect]
     Route: 042
     Dates: start: 20110727
  9. SALAZOPYRIN [Concomitant]
     Indication: COLITIS ULCERATIVE
     Route: 048
     Dates: start: 20110710, end: 20110722
  10. PROGRAF [Concomitant]
     Indication: COLITIS ULCERATIVE
     Route: 048
     Dates: start: 20110719, end: 20110720
  11. PROGRAF [Concomitant]
     Route: 048
     Dates: start: 20110721, end: 20110721
  12. ASACOL [Concomitant]
     Indication: COLITIS ULCERATIVE
     Route: 048
     Dates: start: 20110723
  13. IMURAN [Concomitant]
     Indication: COLITIS ULCERATIVE
     Route: 048
     Dates: start: 20120208, end: 20120214
  14. IMURAN [Concomitant]
     Route: 048
     Dates: start: 20120222, end: 20120228
  15. IMURAN [Concomitant]
     Route: 048
     Dates: start: 20120229

REACTIONS (4)
  - ACNE [None]
  - GUILLAIN-BARRE SYNDROME [None]
  - INFUSION RELATED REACTION [None]
  - SKIN EXFOLIATION [None]
